FAERS Safety Report 7901068-8 (Version None)
Quarter: 2011Q4

REPORT INFORMATION
  Report Type: 
  Country: None (occurrence: None)
  Receive Date: 20111108
  Receipt Date: 20111102
  Transmission Date: 20120403
  Serious: Yes (Death, Other)
  Sender: FDA-Public Use
  Company Number: JP-ELI_LILLY_AND_COMPANY-JP201111001095

PATIENT
  Age: 67 Year
  Sex: Male

DRUGS (2)
  1. CISPLATIN [Concomitant]
     Indication: LUNG ADENOCARCINOMA
     Dosage: 110 MG, UNK
     Route: 042
     Dates: start: 20110615
  2. ALIMTA [Suspect]
     Indication: LUNG ADENOCARCINOMA
     Dosage: 700 MG, UNK
     Route: 042
     Dates: start: 20110615

REACTIONS (2)
  - ILEUS PARALYTIC [None]
  - CARDIO-RESPIRATORY ARREST [None]
